FAERS Safety Report 7204013 (Version 3)
Quarter: 2012Q4

REPORT INFORMATION
  Report Type: Report from Study
  Country: US (occurrence: US)
  Receive Date: 20091208
  Receipt Date: 20121127
  Transmission Date: 20130627
  Serious: Yes (Death, Hospitalization)
  Sender: FDA-Public Use
  Company Number: US-ROCHE-634645

PATIENT
  Age: 60 Year
  Sex: Male
  Weight: 97.5 kg

DRUGS (9)
  1. CAPECITABINE [Suspect]
     Indication: GASTRIC CANCER
     Route: 048
  2. CAPECITABINE [Suspect]
     Route: 048
     Dates: start: 20090511, end: 20090713
  3. VYTORIN [Concomitant]
  4. METOPROLOL [Concomitant]
  5. TRIZOL [Concomitant]
  6. INSULIN [Concomitant]
  7. NEXIUM [Concomitant]
  8. EPIRUBICIN [Concomitant]
     Route: 065
  9. OXALIPLATIN [Concomitant]
     Route: 065

REACTIONS (10)
  - Death [Fatal]
  - Dehydration [Unknown]
  - Haemoglobin decreased [Unknown]
  - Ileus [Unknown]
  - Diverticulum intestinal [Unknown]
  - Diverticulitis [Unknown]
  - Diarrhoea [Recovered/Resolved]
  - Asthenia [Unknown]
  - Stomatitis [Recovered/Resolved]
  - Dyspnoea exertional [Unknown]
